FAERS Safety Report 15113735 (Version 1)
Quarter: 2018Q3

REPORT INFORMATION
  Report Type: Spontaneous
  Country: US (occurrence: US)
  Receive Date: 20180706
  Receipt Date: 20180706
  Transmission Date: 20181010
  Serious: No
  Sender: FDA-Public Use
  Company Number: US-PFIZER INC-2018269161

PATIENT

DRUGS (5)
  1. NORTRIPTYLINE [Suspect]
     Active Substance: NORTRIPTYLINE
     Dosage: UNK
  2. AMITRIPTYLINE [Suspect]
     Active Substance: AMITRIPTYLINE
     Dosage: UNK
  3. SULFAMETHOXAZOLE [Suspect]
     Active Substance: SULFAMETHOXAZOLE
     Dosage: UNK
  4. DULOXETINE. [Suspect]
     Active Substance: DULOXETINE
     Dosage: UNK
  5. ZOLOFT [Suspect]
     Active Substance: SERTRALINE HYDROCHLORIDE
     Dosage: UNK

REACTIONS (1)
  - Drug hypersensitivity [Unknown]
